FAERS Safety Report 15557599 (Version 1)
Quarter: 2018Q4

REPORT INFORMATION
  Report Type: Spontaneous
  Country: ES (occurrence: ES)
  Receive Date: 20181027
  Receipt Date: 20181027
  Transmission Date: 20190205
  Serious: Yes (Hospitalization)
  Sender: FDA-Public Use
  Company Number: ES-AXELLIA-001997

PATIENT
  Age: 35 Year
  Sex: Female

DRUGS (4)
  1. REYATAZ [Concomitant]
     Active Substance: ATAZANAVIR SULFATE
     Indication: MIXED LIVER INJURY
     Dosage: ONE CAPSULE AFTER DINNER
     Route: 048
     Dates: start: 20170330
  2. NORVIR [Concomitant]
     Active Substance: RITONAVIR
     Indication: MIXED LIVER INJURY
     Dosage: ONE CAPSULE AFTER DINNER
     Route: 048
     Dates: start: 20170330
  3. TRUVADA [Concomitant]
     Active Substance: EMTRICITABINE\TENOFOVIR DISOPROXIL FUMARATE
     Indication: MIXED LIVER INJURY
     Dosage: ONE TABLET AFTER DINNER
     Route: 048
     Dates: start: 20170330
  4. VORICONAZOLE. [Suspect]
     Active Substance: VORICONAZOLE
     Indication: MIXED LIVER INJURY
     Dosage: 300 MG EVERY 12 HOURS
     Route: 048
     Dates: start: 20171031, end: 20171108

REACTIONS (1)
  - Mixed liver injury [Recovered/Resolved]

NARRATIVE: CASE EVENT DATE: 20171108
